FAERS Safety Report 25094544 (Version 1)
Quarter: 2025Q1

REPORT INFORMATION
  Report Type: Spontaneous
  Country: CA (occurrence: CA)
  Receive Date: 20250319
  Receipt Date: 20250319
  Transmission Date: 20250408
  Serious: Yes (Other)
  Sender: ANI
  Company Number: CA-ANIPHARMA-2020-CA-001353

PATIENT
  Age: 51 Year
  Sex: Female

DRUGS (7)
  1. ANASTROZOLE [Suspect]
     Active Substance: ANASTROZOLE
     Indication: Breast cancer
     Route: 048
     Dates: start: 2015
  2. FASLODEX [Suspect]
     Active Substance: FULVESTRANT
     Route: 030
  3. IBRANCE [Suspect]
     Active Substance: PALBOCICLIB
     Route: 048
  4. AFINITOR [Suspect]
     Active Substance: EVEROLIMUS
     Route: 048
  5. LETROZOLE [Suspect]
     Active Substance: LETROZOLE
     Route: 048
     Dates: start: 201808, end: 201908
  6. RUXOLITINIB [Suspect]
     Active Substance: RUXOLITINIB
     Route: 065
  7. DEVICE [Suspect]
     Active Substance: DEVICE

REACTIONS (6)
  - Breast cancer [Unknown]
  - Malignant neoplasm progression [Unknown]
  - Metastases to liver [Unknown]
  - Drug intolerance [Unknown]
  - Hot flush [Unknown]
  - Metastases to central nervous system [Unknown]

NARRATIVE: CASE EVENT DATE: 20180801
